FAERS Safety Report 23802819 (Version 1)
Quarter: 2024Q2

REPORT INFORMATION
  Report Type: Spontaneous
  Country: US (occurrence: US)
  Receive Date: 20240501
  Receipt Date: 20240501
  Transmission Date: 20240716
  Serious: Yes (Other)
  Sender: FDA-Public Use
  Company Number: US-CHIESI-2024CHF02393

PATIENT
  Age: 71 Year
  Sex: Male

DRUGS (7)
  1. BETHKIS [Suspect]
     Active Substance: TOBRAMYCIN
     Indication: Pneumonia
     Dosage: 1 DOSAGE FORM, BID
     Dates: start: 20240407
  2. BETHKIS [Suspect]
     Active Substance: TOBRAMYCIN
     Indication: Off label use
  3. FARXIGA [Concomitant]
     Active Substance: DAPAGLIFLOZIN PROPANEDIOL
     Indication: Product used for unknown indication
     Dosage: UNK, QD
  4. GUAIFENESIN [Concomitant]
     Active Substance: GUAIFENESIN
     Indication: Product used for unknown indication
     Dosage: 2 DOSAGE FORM, BID
  5. LORATADINE [Concomitant]
     Active Substance: LORATADINE
     Indication: Product used for unknown indication
     Dosage: UNK, QD
  6. POTASSIUM [Concomitant]
     Active Substance: POTASSIUM
     Indication: Product used for unknown indication
     Dosage: UNK, QD
  7. VALSARTAN [Concomitant]
     Active Substance: VALSARTAN
     Indication: Product used for unknown indication
     Dosage: 0.5 DOSAGE FORM, QD

REACTIONS (6)
  - Ageusia [Not Recovered/Not Resolved]
  - Stomatitis [Not Recovered/Not Resolved]
  - Sputum increased [Not Recovered/Not Resolved]
  - Sputum retention [Not Recovered/Not Resolved]
  - Sputum discoloured [Not Recovered/Not Resolved]
  - Off label use [Not Recovered/Not Resolved]

NARRATIVE: CASE EVENT DATE: 20240407
